FAERS Safety Report 8016903-5 (Version None)
Quarter: 2012Q1

REPORT INFORMATION
  Report Type: 
  Country: None (occurrence: None)
  Receive Date: 20120102
  Receipt Date: 20111219
  Transmission Date: 20120608
  Serious: Yes (Other)
  Sender: FDA-Public Use
  Company Number: PHEH2011US012065

PATIENT
  Sex: Female
  Weight: 82.993 kg

DRUGS (1)
  1. SANDOSTATIN LAR [Suspect]

REACTIONS (11)
  - CUSHING'S SYNDROME [None]
  - ANAEMIA [None]
  - HAEMOGLOBIN DECREASED [None]
  - PRURITUS [None]
  - DISEASE PROGRESSION [None]
  - WEIGHT INCREASED [None]
  - STOMATITIS [None]
  - HYPERHIDROSIS [None]
  - OEDEMA PERIPHERAL [None]
  - CONTUSION [None]
  - ASTHENIA [None]
